FAERS Safety Report 5826008-7 (Version None)
Quarter: 2008Q3

REPORT INFORMATION
  Report Type: 
  Country: None (occurrence: None)
  Receive Date: 20080729
  Receipt Date: 20080717
  Transmission Date: 20090109
  Serious: Yes (Other)
  Sender: FDA-Public Use
  Company Number: JP-ROCHE-575012

PATIENT
  Age: 58 Year
  Sex: Female

DRUGS (2)
  1. PEG-INTERFERON A-2A (RO 25-8310) [Suspect]
     Route: 065
  2. PEG-INTERFERON A-2A (RO 25-8310) [Suspect]
     Dosage: RESTARTED AND COMPLETED 48 WEEKS TREATMENT.
     Route: 065

REACTIONS (1)
  - POSTPARTUM HYPOPITUITARISM [None]
